FAERS Safety Report 8905266 (Version 1)
Quarter: 2012Q4

REPORT INFORMATION
  Report Type: 
  Country: US (occurrence: US)
  Receive Date: 20121112
  Receipt Date: 20121112
  Transmission Date: 20130627
  Serious: Yes (Hospitalization)
  Sender: FDA-Public Use
  Company Number: US-BAYER-2012-116557

PATIENT
  Age: 45 Year
  Sex: Female

DRUGS (4)
  1. BEYAZ [Suspect]
     Indication: MENORRHAGIA
     Dosage: UNK
  2. SULFASALAZINE [Concomitant]
  3. MULTIVITAMIN [Concomitant]
  4. IBUPROFEN [Concomitant]
     Dosage: UNK UNK, PRN

REACTIONS (3)
  - Deep vein thrombosis [None]
  - Pelvic venous thrombosis [None]
  - Off label use [None]
